FAERS Safety Report 5071501-0 (Version None)
Quarter: 2006Q3

REPORT INFORMATION
  Report Type: 
  Country: None (occurrence: None)
  Receive Date: 20060804
  Receipt Date: 20060725
  Transmission Date: 20061208
  Serious: Yes (Death)
  Sender: FDA-Public Use
  Company Number: US-SANOFI-SYNTHELABO-A03200604701

PATIENT
  Sex: Female

DRUGS (11)
  1. PLAVIX [Suspect]
     Indication: CEREBROVASCULAR ACCIDENT
     Route: 048
     Dates: start: 20060214
  2. ZOCOR [Concomitant]
     Dosage: UNK
     Route: 048
  3. MOMETASONE [Concomitant]
     Dosage: UNK
     Route: 061
  4. TIMOLOL MALEATE [Concomitant]
     Dosage: UNK
     Route: 047
  5. AGGRENOX [Concomitant]
     Dosage: 25/200 MG UNKNOWN
     Route: 048
  6. CILOSTAZOL [Concomitant]
     Dosage: UNK
     Route: 048
  7. OMEPRAZOLE [Concomitant]
     Route: 048
  8. PROTONIX [Concomitant]
     Route: 048
  9. ASPIRIN [Concomitant]
     Route: 048
  10. NORVASC [Concomitant]
     Dosage: 10MG QD OR TID
     Route: 048
  11. LISINOPRIL [Concomitant]
     Route: 048

REACTIONS (4)
  - BACK PAIN [None]
  - CEREBROVASCULAR ACCIDENT [None]
  - DRUG INEFFECTIVE [None]
  - RASH [None]
